FAERS Safety Report 24676610 (Version 1)
Quarter: 2024Q4

REPORT INFORMATION
  Report Type: Spontaneous
  Country: US (occurrence: US)
  Receive Date: 20241128
  Receipt Date: 20241128
  Transmission Date: 20250115
  Serious: Yes (Hospitalization, Other)
  Sender: ALEXION PHARMACEUTICALS
  Company Number: US-ASTRAZENECA-202411USA017479US

PATIENT

DRUGS (10)
  1. FASLODEX [Suspect]
     Active Substance: FULVESTRANT
  2. FASLODEX [Suspect]
     Active Substance: FULVESTRANT
  3. FASLODEX [Suspect]
     Active Substance: FULVESTRANT
  4. FASLODEX [Suspect]
     Active Substance: FULVESTRANT
  5. PALBOCICLIB [Suspect]
     Active Substance: PALBOCICLIB
     Indication: Breast cancer female
     Dosage: 100 MILLIGRAM
  6. PALBOCICLIB [Suspect]
     Active Substance: PALBOCICLIB
     Indication: Bone cancer
     Dosage: 100 MILLIGRAM
  7. PALBOCICLIB [Suspect]
     Active Substance: PALBOCICLIB
     Dosage: 100 MILLIGRAM
  8. PALBOCICLIB [Suspect]
     Active Substance: PALBOCICLIB
     Dosage: 100 MILLIGRAM
  9. OXYCODONE [Suspect]
     Active Substance: OXYCODONE
  10. OXYCODONE [Suspect]
     Active Substance: OXYCODONE
     Route: 065

REACTIONS (10)
  - Acute kidney injury [Unknown]
  - Encephalopathy [Unknown]
  - Anaemia vitamin B12 deficiency [Unknown]
  - Pancytopenia [Unknown]
  - Osteoarthritis [Unknown]
  - Neutropenia [Unknown]
  - Fatigue [Unknown]
  - Limb discomfort [Unknown]
  - Hallucination [Unknown]
  - Compression fracture [Unknown]
